FAERS Safety Report 15474898 (Version 1)
Quarter: 2018Q4

REPORT INFORMATION
  Report Type: Report from Study
  Country: US (occurrence: US)
  Receive Date: 20181008
  Receipt Date: 20181008
  Transmission Date: 20190205
  Serious: Yes (Death, Hospitalization, Other)
  Sender: FDA-Public Use
  Company Number: US-ARIAD PHARMACEUTICALS, INC-2017US009031

PATIENT
  Age: 63 Year
  Sex: Female

DRUGS (1)
  1. PONATINIB [Suspect]
     Active Substance: PONATINIB
     Indication: CHRONIC MYELOID LEUKAEMIA
     Dosage: 45 MG, QD
     Route: 048
     Dates: start: 20170621

REACTIONS (15)
  - Rash papular [Unknown]
  - Nausea [Unknown]
  - Acute respiratory failure [Unknown]
  - Dry skin [Unknown]
  - Arthralgia [Unknown]
  - Chronic myeloid leukaemia [Unknown]
  - Abdominal tenderness [Unknown]
  - Death [Fatal]
  - Pneumonia [Unknown]
  - Neck mass [Unknown]
  - Headache [Unknown]
  - Palpitations [Unknown]
  - Fluid overload [Unknown]
  - Vomiting [Unknown]
  - Cough [Unknown]

NARRATIVE: CASE EVENT DATE: 20180504
